FAERS Safety Report 21700850 (Version 1)
Quarter: 2022Q4

REPORT INFORMATION
  Report Type: Spontaneous
  Country: IT (occurrence: IT)
  Receive Date: 20221208
  Receipt Date: 20221208
  Transmission Date: 20230113
  Serious: Yes (Life-Threatening)
  Sender: FDA-Public Use
  Company Number: None

PATIENT
  Age: 60 Year
  Sex: Male
  Weight: 75 kg

DRUGS (7)
  1. OXALIPLATIN [Suspect]
     Active Substance: OXALIPLATIN
     Indication: Colon cancer metastatic
     Dosage: 247 MG ADMINISTERED OVER 2 HOURS. THE PATIENT HAS NOT FINISHED THE?INFUSION
     Dates: start: 20221024, end: 20221024
  2. ATORVASTATIN [Concomitant]
     Active Substance: ATORVASTATIN
     Indication: Hypercholesterolaemia
  3. ASPIRIN [Concomitant]
     Active Substance: ASPIRIN
  4. RAMIPRIL [Concomitant]
     Active Substance: RAMIPRIL
  5. PLAVIX [Concomitant]
     Active Substance: CLOPIDOGREL BISULFATE
  6. RANEXA [Concomitant]
     Active Substance: RANOLAZINE
  7. TENORMIN [Concomitant]
     Active Substance: ATENOLOL
     Dosage: THE PATIENT TAKES HALF A TABLET OF TENORMIN 100MG PER DAY

REACTIONS (5)
  - Pruritus [Recovered/Resolved]
  - Hypotension [Recovered/Resolved]
  - Cyanosis [Recovered/Resolved]
  - Dyspnoea [Recovering/Resolving]
  - Cardiac arrest [Recovered/Resolved]

NARRATIVE: CASE EVENT DATE: 20221024
